FAERS Safety Report 5029111-7 (Version None)
Quarter: 2006Q2

REPORT INFORMATION
  Report Type: 
  Country: None (occurrence: None)
  Receive Date: 20060613
  Receipt Date: 20060609
  Transmission Date: 20061013
  Serious: Yes (Other)
  Sender: FDA-Public Use
  Company Number: URSO-2006-021

PATIENT
  Age: 68 Year
  Sex: Female

DRUGS (1)
  1. URSODIOL [Suspect]
     Indication: HEPATITIS C
     Dosage: 600 MG PO
     Route: 048

REACTIONS (1)
  - HYPONATRAEMIA [None]
